FAERS Safety Report 11189528 (Version 1)
Quarter: 2015Q2

REPORT INFORMATION
  Report Type: Spontaneous
  Country: CZ (occurrence: None)
  Receive Date: 20150611
  Receipt Date: 20150611
  Transmission Date: 20150821
  Serious: Yes (Life-Threatening, Hospitalization)
  Sender: FDA-Public Use
  Company Number: 2015SGN00902

PATIENT
  Sex: Female
  Weight: 41 kg

DRUGS (5)
  1. OMEPRAZOLE (OMEPRAZOLE) [Concomitant]
     Active Substance: OMEPRAZOLE
  2. AMOXYCILLIN (AMOXICILLIN) [Concomitant]
  3. METAMIZOLE (METAMIZOLE SODIUM) [Concomitant]
  4. BRENTUXIMAB VEDOTIN (BRENTUXIMAB VEDOTIN) INJECTION [Suspect]
     Active Substance: BRENTUXIMAB VEDOTIN
     Indication: LYMPHOMA
     Dates: start: 20150521
  5. GENTAMICINE (BENTAMICIN SULFATE) [Concomitant]

REACTIONS (2)
  - Haematemesis [None]
  - Hypotension [None]

NARRATIVE: CASE EVENT DATE: 20150526
